FAERS Safety Report 4822763-3 (Version None)
Quarter: 2005Q4

REPORT INFORMATION
  Report Type: 
  Country: None (occurrence: None)
  Receive Date: 20051107
  Receipt Date: 20051107
  Transmission Date: 20060501
  Serious: Yes (Life-Threatening)
  Sender: FDA-Public Use
  Company Number: None

PATIENT
  Age: 51 Year
  Sex: Female
  Weight: 64.8644 kg

DRUGS (1)
  1. AVELOX [Suspect]
     Indication: OTITIS MEDIA
     Dosage: 400MG   QD   PO
     Route: 048
     Dates: start: 20040403, end: 20040404

REACTIONS (1)
  - STEVENS-JOHNSON SYNDROME [None]
